FAERS Safety Report 7571926-5 (Version None)
Quarter: 2011Q2

REPORT INFORMATION
  Report Type: 
  Country: None (occurrence: None)
  Receive Date: 20110624
  Receipt Date: 20110107
  Transmission Date: 20111010
  Serious: No
  Sender: FDA-Public Use
  Company Number: A0904076A

PATIENT
  Age: 56 Year
  Sex: Female

DRUGS (2)
  1. NO CONCURRENT MEDICATION [Concomitant]
  2. VERAMYST [Suspect]
     Dosage: 2SPR PER DAY
     Route: 045
     Dates: start: 20100401

REACTIONS (3)
  - DRUG INEFFECTIVE [None]
  - PRODUCT QUALITY ISSUE [None]
  - HAIR GROWTH ABNORMAL [None]
